FAERS Safety Report 10669787 (Version 1)
Quarter: 2014Q4

REPORT INFORMATION
  Report Type: Spontaneous
  Country: US (occurrence: US)
  Receive Date: 20141222
  Receipt Date: 20141222
  Transmission Date: 20150529
  Serious: No
  Sender: FDA-Public Use
  Company Number: US-GLAXOSMITHKLINE-A1084201A

PATIENT

DRUGS (2)
  1. ACITRETIN CAPSULE [Suspect]
     Active Substance: ACITRETIN
     Indication: ORAL LICHEN PLANUS
     Route: 048
     Dates: end: 201406
  2. SORIATANE [Suspect]
     Active Substance: ACITRETIN
     Indication: ORAL LICHEN PLANUS
     Route: 048

REACTIONS (3)
  - Nasopharyngitis [Unknown]
  - Drug ineffective [Unknown]
  - Impaired healing [Unknown]
